FAERS Safety Report 5507808-X (Version None)
Quarter: 2007Q4

REPORT INFORMATION
  Report Type: 
  Country: None (occurrence: None)
  Receive Date: 20071106
  Receipt Date: 20071030
  Transmission Date: 20080405
  Serious: Yes (Hospitalization, Other)
  Sender: FDA-Public Use
  Company Number: JP-MERCK-0702USA04662

PATIENT
  Age: 60 Year
  Sex: Female
  Weight: 49 kg

DRUGS (5)
  1. FOSAMAX [Suspect]
     Indication: OSTEOPOROSIS
     Route: 048
     Dates: start: 20060606, end: 20070227
  2. AMLODIPINE [Concomitant]
     Indication: HYPERTENSION
     Route: 048
     Dates: start: 20060112
  3. DIOVAN [Concomitant]
     Indication: HYPERTENSION
     Route: 048
     Dates: start: 20061128
  4. PRAVASTATIN [Concomitant]
     Indication: HYPERLIPIDAEMIA
     Route: 048
     Dates: start: 20060119, end: 20061127
  5. PRAVASTATIN SODIUM [Concomitant]
     Route: 048
     Dates: start: 20061128

REACTIONS (3)
  - DENTAL ALVEOLAR ANOMALY [None]
  - FIBROUS DYSPLASIA OF BONE [None]
  - OSTEOMYELITIS CHRONIC [None]
